FAERS Safety Report 25902259 (Version 1)
Quarter: 2025Q4

REPORT INFORMATION
  Report Type: Spontaneous
  Country: US (occurrence: US)
  Receive Date: 20251009
  Receipt Date: 20251009
  Transmission Date: 20260117
  Serious: Yes (Death, Hospitalization, Other)
  Sender: AMGEN
  Company Number: US-AMGEN-USASP2025196582

PATIENT

DRUGS (1)
  1. BEVACIZUMAB [Suspect]
     Active Substance: BEVACIZUMAB
     Indication: Hepatocellular carcinoma
     Dosage: UNK
     Route: 065

REACTIONS (12)
  - Death [Fatal]
  - Immune-mediated hepatitis [Unknown]
  - Immune-mediated lung disease [Unknown]
  - Immune-mediated dermatitis [Unknown]
  - Myasthenia gravis [Unknown]
  - Neutropenia [Unknown]
  - Immune-mediated enterocolitis [Unknown]
  - Ascites [Unknown]
  - Hepatocellular carcinoma [Unknown]
  - Drug ineffective for unapproved indication [Unknown]
  - Drug effective for unapproved indication [Unknown]
  - Off label use [Unknown]
